FAERS Safety Report 6371464-1 (Version None)
Quarter: 2009Q3

REPORT INFORMATION
  Report Type: 
  Country: None (occurrence: None)
  Receive Date: 20090918
  Receipt Date: 20090902
  Transmission Date: 20100115
  Serious: Yes (Hospitalization)
  Sender: FDA-Public Use
  Company Number: 8051789

PATIENT
  Age: 23 Year
  Sex: Female

DRUGS (5)
  1. PREDNISOLONE [Suspect]
     Dosage: 20 MG 3/D
  2. DAPSONE [Concomitant]
  3. RIFAMPICIN [Concomitant]
  4. CLOFAZIMINE [Concomitant]
  5. OFLOXACIN [Concomitant]

REACTIONS (5)
  - ESCHERICHIA INFECTION [None]
  - GLUCOSE-6-PHOSPHATE DEHYDROGENASE DEFICIENCY [None]
  - HAEMOLYTIC ANAEMIA [None]
  - SKIN GRAFT [None]
  - STAPHYLOCOCCAL INFECTION [None]
